FAERS Safety Report 6966730-2 (Version None)
Quarter: 2010Q3

REPORT INFORMATION
  Report Type: 
  Country: None (occurrence: None)
  Receive Date: 20100906
  Receipt Date: 20100830
  Transmission Date: 20110219
  Serious: Yes (Other)
  Sender: FDA-Public Use
  Company Number: US-ASTRAZENECA-2008UW04631

PATIENT
  Age: 9137 Day
  Sex: Female
  Weight: 90.3 kg

DRUGS (17)
  1. SEROQUEL [Suspect]
     Indication: DEPRESSION
     Dosage: 100 TO 800 MG
     Route: 048
     Dates: start: 20060909
  2. SEROQUEL [Suspect]
     Indication: BIPOLAR DISORDER
     Dosage: 100 TO 800 MG
     Route: 048
     Dates: start: 20060909
  3. SEROQUEL [Suspect]
     Indication: SLEEP DISORDER
     Dosage: 100 TO 800 MG
     Route: 048
     Dates: start: 20060909
  4. SEROQUEL [Suspect]
     Dosage: 100-400 MG
     Route: 048
     Dates: start: 20060910
  5. SEROQUEL [Suspect]
     Dosage: 100-400 MG
     Route: 048
     Dates: start: 20060910
  6. SEROQUEL [Suspect]
     Dosage: 100-400 MG
     Route: 048
     Dates: start: 20060910
  7. SEROQUEL [Suspect]
     Route: 048
     Dates: start: 20060101, end: 20070101
  8. SEROQUEL [Suspect]
     Route: 048
     Dates: start: 20060101, end: 20070101
  9. SEROQUEL [Suspect]
     Route: 048
     Dates: start: 20060101, end: 20070101
  10. PROZAC [Concomitant]
     Dosage: 20-80 MG
     Route: 048
  11. DEPAKOTE [Concomitant]
     Route: 065
  12. RISPERDAL [Concomitant]
     Indication: SLEEP DISORDER
     Route: 065
  13. TRAZODONE HCL [Concomitant]
     Route: 065
  14. REGULAR INSULIN [Concomitant]
     Dosage: 10 UNITS
     Route: 065
  15. GLUCOTROL [Concomitant]
     Route: 065
     Dates: start: 20070328
  16. ZOLOFT [Concomitant]
  17. TORADOL [Concomitant]

REACTIONS (12)
  - DIABETIC COMPLICATION [None]
  - DRY MOUTH [None]
  - EYE PRURITUS [None]
  - HYPOAESTHESIA [None]
  - INCREASED APPETITE [None]
  - INTENTIONAL SELF-INJURY [None]
  - NAUSEA [None]
  - OBESITY [None]
  - RHEUMATOID ARTHRITIS [None]
  - TYPE 2 DIABETES MELLITUS [None]
  - VISION BLURRED [None]
  - WEIGHT INCREASED [None]
